FAERS Safety Report 11094015 (Version 1)
Quarter: 2015Q2

REPORT INFORMATION
  Report Type: Spontaneous
  Country: US (occurrence: US)
  Receive Date: 20150506
  Receipt Date: 20150506
  Transmission Date: 20150821
  Serious: Yes (Life-Threatening, Hospitalization)
  Sender: FDA-Public Use
  Company Number: US-BAYER-2015-178237

PATIENT
  Age: 62 Year
  Sex: Male

DRUGS (2)
  1. GADOBUTROL [Suspect]
     Active Substance: GADOBUTROL
     Indication: CARDIOMYOPATHY
  2. GADOBUTROL [Suspect]
     Active Substance: GADOBUTROL
     Indication: CARDIAC IMAGING PROCEDURE
     Dosage: 20 ML, ONCE
     Route: 042

REACTIONS (3)
  - Cardiopulmonary failure [None]
  - Shock [None]
  - Pulmonary oedema [None]
